FAERS Safety Report 16106817 (Version 1)
Quarter: 2019Q1

REPORT INFORMATION
  Report Type: Spontaneous
  Country: US (occurrence: US)
  Receive Date: 20190219
  Receipt Date: 20190219
  Transmission Date: 20190418
  Serious: No
  Sender: FDA-Public Use
  Company Number: None

PATIENT
  Age: 68 Year
  Sex: Female

DRUGS (3)
  1. DEXAMETHASONE. [Suspect]
     Active Substance: DEXAMETHASONE
  2. REVLIMID [Suspect]
     Active Substance: LENALIDOMIDE
  3. VELCADE [Suspect]
     Active Substance: BORTEZOMIB

REACTIONS (8)
  - Urogenital fistula [None]
  - Vomiting [None]
  - Decreased appetite [None]
  - Nausea [None]
  - Diarrhoea [None]
  - Urine output decreased [None]
  - Asthenia [None]
  - Gastrointestinal wall thickening [None]

NARRATIVE: CASE EVENT DATE: 20190212
